FAERS Safety Report 22599758 (Version 1)
Quarter: 2023Q2

REPORT INFORMATION
  Report Type: Report from Study
  Country: CA (occurrence: CA)
  Receive Date: 20230614
  Receipt Date: 20230614
  Transmission Date: 20230722
  Serious: Yes (Life-Threatening, Hospitalization, Other)
  Sender: FDA-Public Use
  Company Number: CA-PFIZER INC-202300217967

PATIENT
  Age: 61 Year
  Sex: Female

DRUGS (4)
  1. METHOTREXATE SODIUM [Suspect]
     Active Substance: METHOTREXATE SODIUM
     Indication: Spondyloarthropathy
     Dosage: WEEKLY
     Route: 048
  2. HYRIMOZ [Suspect]
     Active Substance: ADALIMUMAB-ADAZ
     Indication: Spondyloarthropathy
     Dosage: UNK
  3. HYRIMOZ [Suspect]
     Active Substance: ADALIMUMAB-ADAZ
     Indication: Ankylosing spondylitis
     Dosage: 40 MG
     Route: 058
  4. DOXYCYCLINE [Concomitant]
     Active Substance: DOXYCYCLINE
     Dosage: 10 MG, 1X/DAY
     Route: 065

REACTIONS (10)
  - Acute respiratory distress syndrome [Recovered/Resolved]
  - Fungal infection [Recovered/Resolved]
  - Ill-defined disorder [Recovered/Resolved]
  - Immune system disorder [Recovered/Resolved]
  - Pneumonia legionella [Recovered/Resolved]
  - Pneumothorax [Recovered/Resolved]
  - Rash [Recovered/Resolved]
  - Respiratory failure [Recovered/Resolved]
  - Sepsis [Recovered/Resolved]
  - Vasculitis [Recovered/Resolved]
